FAERS Safety Report 6277520-0 (Version None)
Quarter: 2009Q3

REPORT INFORMATION
  Report Type: 
  Country: None (occurrence: None)
  Receive Date: 20090722
  Receipt Date: 20070517
  Transmission Date: 20100115
  Serious: Yes (Other)
  Sender: FDA-Public Use
  Company Number: US-ASTRAZENECA-2006UW11730

PATIENT
  Age: 22 Year
  Weight: 65.3 kg

DRUGS (33)
  1. SEROQUEL [Suspect]
     Indication: INSOMNIA
     Route: 048
     Dates: end: 20060801
  2. SEROQUEL [Suspect]
     Indication: DEPRESSION
     Route: 048
     Dates: end: 20060801
  3. SEROQUEL [Suspect]
     Indication: SLEEP DISORDER
     Route: 048
     Dates: end: 20060801
  4. SEROQUEL [Suspect]
     Dosage: 100 TO 600 MG
     Route: 048
     Dates: start: 20040308
  5. SEROQUEL [Suspect]
     Dosage: 100 TO 600 MG
     Route: 048
     Dates: start: 20040308
  6. SEROQUEL [Suspect]
     Dosage: 100 TO 600 MG
     Route: 048
     Dates: start: 20040308
  7. ZYPREXA [Suspect]
  8. HALDOL [Concomitant]
  9. RISPERDAL [Concomitant]
     Dates: start: 19990217
  10. THORAZINE [Concomitant]
  11. DEPAKOTE [Concomitant]
  12. MIRTAZAPINE [Concomitant]
     Dosage: 15 TO 50 MG
     Dates: start: 20030702
  13. ABILIFY [Concomitant]
     Dates: start: 20050108
  14. TRAZODONE [Concomitant]
     Dates: start: 20040923
  15. COGENTIN [Concomitant]
  16. SERZONE [Concomitant]
     Dates: start: 19990217
  17. LITHIUM CARBONATE [Concomitant]
     Route: 048
     Dates: start: 19990217
  18. PROVENTIL-HFA [Concomitant]
     Indication: ASTHMA
     Route: 055
     Dates: start: 20050302
  19. VISTARIL [Concomitant]
     Dates: start: 20050402
  20. PRILOSEC [Concomitant]
  21. DOXYCYCLINE [Concomitant]
     Dates: start: 20050811
  22. LAMICTAL [Concomitant]
     Dates: start: 19980705
  23. WELLBUTRIN [Concomitant]
     Dates: start: 20040405
  24. GEODON [Concomitant]
     Dosage: 20 TO 40 MG
     Dates: start: 20041123
  25. EFFEXOR [Concomitant]
     Dates: start: 20030702
  26. AVANDIA [Concomitant]
     Dates: start: 20050401
  27. ZOLOFT [Concomitant]
  28. GLUCOVANCE [Concomitant]
     Dosage: 5/500 TWICE A DAY
     Dates: start: 20050108
  29. METFORMIN HCL [Concomitant]
     Dates: start: 20050617
  30. GLYBURIDE [Concomitant]
     Dosage: 1.25/250 MG TWICE A DAY
     Dates: start: 20050617
  31. HYDROCODONE BITARTRATE + ACETAMINOPHEN [Concomitant]
     Dates: start: 20040814
  32. KEPPRA [Concomitant]
     Dates: start: 20031015
  33. ACTOS [Concomitant]
     Route: 048
     Dates: start: 20040802

REACTIONS (5)
  - BLOOD PRESSURE DECREASED [None]
  - CARDIAC DISORDER [None]
  - CONVULSION [None]
  - DIABETES MELLITUS [None]
  - SUICIDE ATTEMPT [None]
